FAERS Safety Report 6244534-6 (Version None)
Quarter: 2009Q2

REPORT INFORMATION
  Report Type: 
  Country: None (occurrence: None)
  Receive Date: 20090623
  Receipt Date: 20090615
  Transmission Date: 20091009
  Serious: Yes (Life-Threatening, Hospitalization)
  Sender: FDA-Public Use
  Company Number: GXKR2009NL06953

PATIENT
  Age: 45 Year
  Sex: Female
  Weight: 77 kg

DRUGS (7)
  1. LAMOTRIGINE [Suspect]
     Indication: BIPOLAR DISORDER
     Dosage: 1 DF, QD, ORAL
     Route: 048
     Dates: start: 20080919, end: 20081004
  2. ZYPREXA [Suspect]
     Indication: BIPOLAR DISORDER
     Dosage: 1 DF, QD, ORAL
     Route: 048
     Dates: start: 20080822, end: 20081004
  3. AMITRIPTYLINE HCL [Concomitant]
  4. OXAZEPAM [Concomitant]
  5. FLURAZEPAM (FLURAZEPAM) CAPSULE [Concomitant]
  6. PANTOPRAZOLE SODIUM [Concomitant]
  7. LITHIUM CARBONATE [Concomitant]

REACTIONS (1)
  - NEUROLEPTIC MALIGNANT SYNDROME [None]
